FAERS Safety Report 4738579-2 (Version None)
Quarter: 2005Q3

REPORT INFORMATION
  Report Type: 
  Country: None (occurrence: None)
  Receive Date: 20050803
  Receipt Date: 20050718
  Transmission Date: 20060218
  Serious: Yes (Other)
  Sender: FDA-Public Use
  Company Number: USA020820470

PATIENT
  Age: 84 Year
  Sex: Female
  Weight: 42 kg

DRUGS (15)
  1. FORTEO [Suspect]
     Indication: OSTEOPOROSIS
     Dosage: 20 UG/ 1 DAY
     Dates: start: 20040621
  2. FORTEO [Suspect]
     Indication: SPINAL FRACTURE
     Dosage: 20 UG/ 1 DAY
     Dates: start: 20040621
  3. EVISTA [Suspect]
     Indication: OSTEOPOROSIS
     Dosage: 60 MG DAY
     Dates: start: 20020301, end: 20040621
  4. PREVACID [Concomitant]
  5. NITRO PATCH (GLYCERYL TRINITRATE) [Concomitant]
  6. NIACIN [Concomitant]
  7. VITAMINS [Concomitant]
  8. TYLENOL [Concomitant]
  9. DARVOCET-N 100 [Concomitant]
  10. CALCIUM PLUS MINERALS [Concomitant]
  11. LIPITOR [Concomitant]
  12. ACIPHEX [Concomitant]
  13. NEXIUM [Concomitant]
  14. XANAX (ALPRAZOLAM DUM) [Concomitant]
  15. MINITRAN (GLYCERYL TRINITRATE) [Concomitant]

REACTIONS (14)
  - ARTHRITIS [None]
  - CAROTID ARTERY DISEASE [None]
  - CONTUSION [None]
  - DYSURIA [None]
  - FAECES DISCOLOURED [None]
  - FALL [None]
  - INJECTION SITE ERYTHEMA [None]
  - INJECTION SITE HAEMORRHAGE [None]
  - INSOMNIA [None]
  - NEPHROLITHIASIS [None]
  - NERVOUSNESS [None]
  - OEDEMA PERIPHERAL [None]
  - PAIN [None]
  - PHARMACEUTICAL PRODUCT COMPLAINT [None]
